FAERS Safety Report 9175946 (Version 3)
Quarter: 2014Q2

REPORT INFORMATION
  Report Type: Spontaneous
  Country: US (occurrence: US)
  Receive Date: 20130320
  Receipt Date: 20140606
  Transmission Date: 20141212
  Serious: No
  Sender: FDA-Public Use
  Company Number: US-009507513-1303USA007648

PATIENT
  Sex: Male

DRUGS (17)
  1. VYTORIN [Suspect]
     Dosage: UNK
     Route: 048
  2. CYANOCOBALAMIN [Concomitant]
     Dosage: 1 ML; QM
     Route: 030
  3. ASPIRIN [Concomitant]
     Dosage: 1 DF, QAM
     Route: 048
  4. PLAVIX [Concomitant]
     Dosage: 1 TABLET ONCE A DAY
     Route: 048
  5. TEMOVATE [Concomitant]
     Indication: RASH
     Dosage: AS DIRECTED APPLIED PRN
     Route: 061
  6. TEMOVATE [Concomitant]
     Dosage: AS DIRECTED APPLIED BID
     Route: 061
  7. FLOMAX (MORNIFLUMATE) [Concomitant]
     Dosage: 1 CAPSULE ONCE A DAY
     Route: 048
  8. PRINIVIL [Concomitant]
     Dosage: 1 TABLET, BID
     Route: 048
  9. ZOSTAVAX [Concomitant]
     Indication: PROPHYLAXIS
  10. FISH OIL [Concomitant]
     Dosage: 1 TABLET, BID
  11. VIAGRA [Concomitant]
     Dosage: 1/2 TO 1  TABLET AS DIRECTED
     Route: 048
  12. ZETIA [Concomitant]
     Dosage: 1 DF, QD
     Route: 048
  13. TESTOSTERONE CYPIONATE [Concomitant]
     Dosage: 1.5 ML, EVERY 2 WEEKS
     Route: 030
  14. LIVALO [Concomitant]
     Dosage: 1 TABLET; HS
     Route: 048
  15. LOVAZA [Concomitant]
     Dosage: 2 CAPSULES, 2 TIMES A DAY
     Route: 048
  16. TRILIPIX [Concomitant]
     Dosage: 1 TABLET QD
     Route: 048
  17. ALBUTEROL [Concomitant]
     Dosage: 2 PUFFS INHALED QID PRN (AEROSOL WITH ADAPTER)
     Route: 055

REACTIONS (2)
  - Hepatitis [Unknown]
  - Drug hypersensitivity [Unknown]
